FAERS Safety Report 23638348 (Version 1)
Quarter: 2024Q1

REPORT INFORMATION
  Report Type: Spontaneous
  Country: US (occurrence: US)
  Receive Date: 20240315
  Receipt Date: 20240315
  Transmission Date: 20240410
  Serious: No
  Sender: FDA-Public Use
  Company Number: US-Covis Pharma GmbH-2024COV00226

PATIENT
  Age: 73 Year
  Sex: Female
  Weight: 49.895 kg

DRUGS (6)
  1. RILUZOLE [Suspect]
     Active Substance: RILUZOLE
     Indication: Amyotrophic lateral sclerosis
     Route: 048
  2. RELYVRIO [Suspect]
     Active Substance: SODIUM PHENYLBUTYRATE\TAURURSODIOL
     Indication: Amyotrophic lateral sclerosis
     Dosage: 1 DOSAGE FORM 1 SACHET ONCE DAILY FOR FIRST 3 WEEKS THEN ONE SACHET TWICE DAILY, ORALLY.
     Route: 048
     Dates: start: 202302
  3. RELYVRIO [Suspect]
     Active Substance: SODIUM PHENYLBUTYRATE\TAURURSODIOL
     Dosage: 1 DOSAGE FORM 1 SACHET ONCE DAILY FOR FIRST 3 WEEKS THEN ONE SACHET TWICE DAILY, ORALLY.
     Route: 048
     Dates: start: 202302
  4. RADICAVA [Suspect]
     Active Substance: EDARAVONE
     Indication: Amyotrophic lateral sclerosis
     Dosage: 5 ML 1 TIME A DAY FOR 10 OUT OF 14 DAYS, THEN 14 DAYS OFF., EVERY 1 DAYS
     Route: 048
     Dates: start: 20230131
  5. FELODIPINE [Concomitant]
     Active Substance: FELODIPINE
  6. ASPIRIN [Concomitant]
     Active Substance: ASPIRIN

REACTIONS (7)
  - Salivary hypersecretion [Unknown]
  - Fall [Unknown]
  - Product use complaint [Unknown]
  - Weight decreased [Unknown]
  - Nausea [Recovered/Resolved]
  - Intentional dose omission [Unknown]
  - Product use issue [Unknown]
